FAERS Safety Report 18577623 (Version 1)
Quarter: 2020Q4

REPORT INFORMATION
  Report Type: Other
  Country: US (occurrence: US)
  Receive Date: 20201203
  Receipt Date: 20201203
  Transmission Date: 20210114
  Serious: Yes (Other)
  Sender: FDA-Public Use
  Company Number: US-ROCHE-2118317

PATIENT
  Age: 42 Year
  Sex: Female
  Weight: 91.25 kg

DRUGS (4)
  1. OCREVUS [Suspect]
     Active Substance: OCRELIZUMAB
     Indication: MULTIPLE SCLEROSIS
     Dosage: DATE OF TREATMENT: 29/MAY/2020, 28/OCT/2019, 24/SEP/2019, 30/MAR/2018, 06/MAY/2019, 19/NOV/2019, 10/
     Route: 042
     Dates: start: 201804
  2. OCREVUS [Suspect]
     Active Substance: OCRELIZUMAB
     Indication: RELAPSING MULTIPLE SCLEROSIS
     Route: 042
     Dates: start: 201811
  3. OCREVUS [Suspect]
     Active Substance: OCRELIZUMAB
     Route: 042
     Dates: start: 20180301
  4. OCREVUS [Suspect]
     Active Substance: OCRELIZUMAB
     Dosage: 2 HALF DOSES ADMINISTERED 2 WEEKS APART
     Route: 042
     Dates: start: 20180330

REACTIONS (5)
  - Infection [Unknown]
  - Multiple sclerosis relapse [Not Recovered/Not Resolved]
  - Asthenia [Recovered/Resolved]
  - Dyspnoea [Recovered/Resolved]
  - Dyspnoea [Recovered/Resolved]

NARRATIVE: CASE EVENT DATE: 201803
